FAERS Safety Report 5675008-9 (Version None)
Quarter: 2008Q1

REPORT INFORMATION
  Report Type: 
  Country: None (occurrence: None)
  Receive Date: 20080320
  Receipt Date: 20080311
  Transmission Date: 20080703
  Serious: Yes (Other)
  Sender: FDA-Public Use
  Company Number: US-BAYER-200816723NA

PATIENT
  Sex: Female

DRUGS (4)
  1. MAGNEVIST [Suspect]
     Indication: NUCLEAR MAGNETIC RESONANCE IMAGING
     Dates: start: 20070101, end: 20070101
  2. OMNISCAN [Suspect]
  3. MULTIHANCE [Suspect]
  4. OPTIMARK [Suspect]

REACTIONS (10)
  - ANXIETY [None]
  - BONE PAIN [None]
  - EMOTIONAL DISTRESS [None]
  - INJURY [None]
  - JOINT CONTRACTURE [None]
  - JOINT INJURY [None]
  - NEPHROGENIC SYSTEMIC FIBROSIS [None]
  - PAIN [None]
  - SCAR [None]
  - SKIN LESION [None]
